FAERS Safety Report 6137599-3 (Version None)
Quarter: 2009Q1

REPORT INFORMATION
  Report Type: 
  Country: None (occurrence: None)
  Receive Date: 20090327
  Receipt Date: 20090327
  Transmission Date: 20090719
  Serious: Yes (Hospitalization)
  Sender: FDA-Public Use
  Company Number: None

PATIENT
  Age: 49 Year
  Sex: Male
  Weight: 67 kg

DRUGS (1)
  1. CETUXIMAB 100MG (2MG/ML), BMS [Suspect]
     Indication: PANCREATIC CARCINOMA
     Dosage: 450 MG X1 IV
     Route: 042
     Dates: start: 20090319

REACTIONS (3)
  - CARDIO-RESPIRATORY ARREST [None]
  - HYPERGLYCAEMIA [None]
  - LOSS OF CONSCIOUSNESS [None]
